FAERS Safety Report 9568117 (Version 1)
Quarter: 2013Q3

REPORT INFORMATION
  Report Type: Spontaneous
  Country: US (occurrence: US)
  Receive Date: 20130930
  Receipt Date: 20130930
  Transmission Date: 20140515
  Serious: No
  Sender: FDA-Public Use
  Company Number: US-AMGEN-USASP2013052469

PATIENT
  Age: 41 Year
  Sex: Male
  Weight: 58.96 kg

DRUGS (6)
  1. ENBREL [Suspect]
     Indication: PRODUCT USED FOR UNKNOWN INDICATION
     Dosage: 50 MG, QWK
     Route: 058
  2. METHOTREXATE [Concomitant]
     Dosage: UNK
     Route: 048
  3. FOLIC ACID [Concomitant]
     Dosage: UNK
     Route: 048
  4. DICLOFENAC [Concomitant]
     Dosage: 25 MG, UNK
     Route: 048
  5. HYDROCODONE/APAP [Concomitant]
     Dosage: 2.5-325, UNK
     Route: 048
  6. HYDROCODONE/APAP [Concomitant]
     Dosage: 5-500, MG, UNK

REACTIONS (1)
  - Vision blurred [Unknown]
